FAERS Safety Report 7432354-6 (Version None)
Quarter: 2011Q2

REPORT INFORMATION
  Report Type: 
  Country: None (occurrence: None)
  Receive Date: 20110422
  Receipt Date: 20080715
  Transmission Date: 20111010
  Serious: Yes (Other)
  Sender: FDA-Public Use
  Company Number: PHHY2008MX37385

PATIENT
  Age: 56 Year
  Sex: Female

DRUGS (1)
  1. CO-DIOVAN [Suspect]
     Indication: HYPERTENSION
     Dosage: 160 MG VALS AND 25 MG HYDR
     Route: 048
     Dates: start: 20050101

REACTIONS (2)
  - TINNITUS [None]
  - DEAFNESS [None]
